FAERS Safety Report 6664432-3 (Version None)
Quarter: 2010Q2

REPORT INFORMATION
  Report Type: 
  Country: None (occurrence: None)
  Receive Date: 20100401
  Receipt Date: 20100330
  Transmission Date: 20101027
  Serious: Yes (Death, Hospitalization, Other)
  Sender: FDA-Public Use
  Company Number: PHHY2010JP18342

PATIENT
  Age: 67 Year
  Sex: Female
  Weight: 58.5 kg

DRUGS (13)
  1. GLEEVEC [Suspect]
     Indication: CHRONIC MYELOID LEUKAEMIA
     Dosage: 200 MG/DAY
     Route: 048
  2. GLEEVEC [Suspect]
     Dosage: 300 MG/DAY
     Route: 048
  3. DOXORUBICIN HCL [Concomitant]
     Dosage: 20 MG/M2, UNK
  4. VINCRISTINE [Concomitant]
     Dosage: 1.4 MG/M2, UNK
  5. ARA-C [Concomitant]
     Dosage: 100~200 MG
  6. ARA-C [Concomitant]
     Dosage: 1.5 G, BID
  7. DAUNORUBICIN HCL [Concomitant]
     Dosage: 45 MG/DAY~ 60 MG/DAY
  8. IDARUBICIN HCL [Concomitant]
     Dosage: 10 MG/DAY
  9. VINDESINE [Concomitant]
     Dosage: 2 MG/M2, UNK
  10. PREDNISOLONE [Concomitant]
     Dosage: 40 MG/M2, UNK
  11. PREDNISOLONE [Concomitant]
     Dosage: 20 MG/DAY~ 60 MG/DAY
  12. BEHENONYL-ARABINOFURANOSYL CYTOSINE [Concomitant]
     Dosage: 150~200 MG/M2
  13. MERCAPTOPURINE [Concomitant]
     Dosage: 60 MG DAILY
     Route: 048

REACTIONS (8)
  - BLAST CRISIS IN MYELOGENOUS LEUKAEMIA [None]
  - DEATH [None]
  - DRUG RESISTANCE [None]
  - ERYTHEMA MULTIFORME [None]
  - MYELOBLAST COUNT INCREASED [None]
  - PANCYTOPENIA [None]
  - PLATELET COUNT DECREASED [None]
  - RASH [None]
